FAERS Safety Report 6903173-1 (Version None)
Quarter: 2010Q3

REPORT INFORMATION
  Report Type: 
  Country: None (occurrence: None)
  Receive Date: 20100803
  Receipt Date: 20080611
  Transmission Date: 20110219
  Serious: No
  Sender: FDA-Public Use
  Company Number: US-PFIZER INC-2008049821

PATIENT
  Sex: Female
  Weight: 70 kg

DRUGS (5)
  1. LYRICA [Suspect]
     Indication: PARAESTHESIA
     Dates: start: 20080610
  2. LYRICA [Suspect]
     Indication: HYPOAESTHESIA
  3. PERCOCET [Concomitant]
  4. SOMA [Concomitant]
  5. WARFARIN SODIUM [Concomitant]

REACTIONS (2)
  - DYSKINESIA [None]
  - PSYCHOMOTOR HYPERACTIVITY [None]
